FAERS Safety Report 22528749 (Version 1)
Quarter: 2023Q2

REPORT INFORMATION
  Report Type: Spontaneous
  Country: US (occurrence: US)
  Receive Date: 20230607
  Receipt Date: 20230607
  Transmission Date: 20230722
  Serious: Yes (Death)
  Sender: FDA-Public Use
  Company Number: US-AMNEAL PHARMACEUTICALS-2023-AMRX-01906

PATIENT
  Sex: Male

DRUGS (2)
  1. RYTARY [Suspect]
     Active Substance: CARBIDOPA\LEVODOPA
     Indication: Product used for unknown indication
     Dosage: TAKE 3 CAPSULES AT 6 PM, 10 AM AND 2 AM, THEN TAKE 2 CAPSULES AT 6 PM AND BEDTIME
     Route: 048
  2. RYTARY [Suspect]
     Active Substance: CARBIDOPA\LEVODOPA
     Dosage: TAKE 3 CAPSULES BY MOUTH AT 6 AM, TAKE 4 CAPSULES BY MOUTH AT 11 AM, TAKE 3 CAPSULES BY MOUTH AT 4 P
     Route: 048
     Dates: start: 20220223

REACTIONS (1)
  - Hip surgery [Fatal]
